FAERS Safety Report 18331942 (Version 2)
Quarter: 2020Q4

REPORT INFORMATION
  Report Type: Spontaneous
  Country: CA (occurrence: CA)
  Receive Date: 20201001
  Receipt Date: 20201111
  Transmission Date: 20210113
  Serious: Yes (Other)
  Sender: FDA-Public Use
  Company Number: CA-CELLTRION INC.-2020CA024893

PATIENT

DRUGS (6)
  1. INFLECTRA [Suspect]
     Active Substance: INFLIXIMAB-DYYB
     Dosage: 235 MG AT 2, 6 WEEKS, THEN EVERY 8 WEEKS
     Route: 042
     Dates: start: 20200811
  2. FLAGYL [Concomitant]
     Active Substance: METRONIDAZOLE\METRONIDAZOLE HYDROCHLORIDE
     Dosage: UNK
     Route: 065
  3. CIPRO [Concomitant]
     Active Substance: CIPROFLOXACIN HYDROCHLORIDE
     Dosage: UNK
     Route: 065
  4. PREDNISONE. [Concomitant]
     Active Substance: PREDNISONE
     Dosage: UNK
     Route: 065
  5. INFLECTRA [Suspect]
     Active Substance: INFLIXIMAB-DYYB
     Indication: CROHN^S DISEASE
     Dosage: UNK, WEEK 0 (FIRST DOSE IN HOSPITAL)
     Route: 042
     Dates: start: 20200728, end: 20200728
  6. INFLECTRA [Suspect]
     Active Substance: INFLIXIMAB-DYYB
     Dosage: 235 MG, AT 2, 6 WEEKS, THEN EVERY 8 WEEKS
     Route: 042
     Dates: start: 20200915

REACTIONS (12)
  - Abdominal pain [Unknown]
  - Stevens-Johnson syndrome [Unknown]
  - Condition aggravated [Unknown]
  - Eye oedema [Unknown]
  - Oropharyngeal pain [Unknown]
  - Rash [Unknown]
  - Dysphagia [Unknown]
  - Anal fissure [Unknown]
  - Herpes zoster [Unknown]
  - Blister [Unknown]
  - Rash erythematous [Unknown]
  - Hypotension [Unknown]

NARRATIVE: CASE EVENT DATE: 20200728
